FAERS Safety Report 5361150-9 (Version None)
Quarter: 2007Q2

REPORT INFORMATION
  Report Type: 
  Country: None (occurrence: None)
  Receive Date: 20070618
  Receipt Date: 20070611
  Transmission Date: 20071010
  Serious: Yes (Other)
  Sender: FDA-Public Use
  Company Number: DK-ABBOTT-07P-044-0371033-00

PATIENT
  Sex: Male

DRUGS (7)
  1. ERGENYL [Suspect]
     Indication: EPILEPSY
     Route: 042
     Dates: start: 20070326
  2. HEPARIN [Concomitant]
     Indication: THROMBOSIS PROPHYLAXIS
     Route: 058
  3. AMPICILLIN [Concomitant]
     Indication: MENINGITIS
     Route: 042
  4. ACYCLOVIR [Concomitant]
     Indication: DRUG USE FOR UNKNOWN INDICATION
     Route: 065
  5. CEFTRIAXONE [Concomitant]
     Indication: MENINGITIS
     Route: 042
  6. LORAZEPAM [Concomitant]
     Indication: RESTLESSNESS
     Route: 048
  7. ACYCLOVIR [Concomitant]

REACTIONS (2)
  - BLOOD CREATINE PHOSPHOKINASE INCREASED [None]
  - CONVULSION [None]
